FAERS Safety Report 5866485-9 (Version None)
Quarter: 2008Q3

REPORT INFORMATION
  Report Type: 
  Country: None (occurrence: None)
  Receive Date: 20080902
  Receipt Date: 20080902
  Transmission Date: 20090109
  Serious: Yes (Hospitalization)
  Sender: FDA-Public Use
  Company Number: PHEH1995US03115

PATIENT
  Sex: Male
  Weight: 125.5 kg

DRUGS (10)
  1. NEORAL [Suspect]
     Dosage: 200MG PO + 97MG IV
     Route: 042
     Dates: start: 19950206
  2. NEORAL [Suspect]
     Dosage: 200MG PO + 97MG IV
     Route: 048
     Dates: start: 19950206
  3. SANDIMMUNE [Suspect]
  4. CLONIDINE TTS (CLONIDINE) [Concomitant]
  5. PREDNISONE TAB [Concomitant]
  6. KAYEXALATE [Concomitant]
  7. PEPCID [Concomitant]
  8. PROCARDIA XL [Concomitant]
  9. LASIX [Concomitant]
  10. ACTIGALL [Concomitant]

REACTIONS (10)
  - ACUTE RESPIRATORY DISTRESS SYNDROME [None]
  - DEPRESSED LEVEL OF CONSCIOUSNESS [None]
  - IMPAIRED HEALING [None]
  - PLEURAL EFFUSION [None]
  - PULMONARY OEDEMA [None]
  - RENAL FAILURE ACUTE [None]
  - RESPIRATORY DISORDER [None]
  - RESPIRATORY FAILURE [None]
  - SKIN ULCER [None]
  - URINARY TRACT INFECTION [None]
